FAERS Safety Report 8928546 (Version 1)
Quarter: 2012Q4

REPORT INFORMATION
  Report Type: 
  Country: US (occurrence: US)
  Receive Date: 20121127
  Receipt Date: 20121127
  Transmission Date: 20130627
  Serious: No
  Sender: FDA-Public Use
  Company Number: US-TEVA-371579USA

PATIENT
  Age: 72 Year
  Sex: Female
  Weight: 90.8 kg

DRUGS (2)
  1. PROAIR HFA [Suspect]
     Indication: HYPERSENSITIVITY
     Dosage: PRN
     Route: 055
     Dates: start: 20121119
  2. METOPROLOL [Concomitant]
     Indication: HYPERTENSION
     Dosage: 100 Milligram Daily;
     Route: 048

REACTIONS (1)
  - Nausea [Not Recovered/Not Resolved]
